FAERS Safety Report 5675997-2 (Version None)
Quarter: 2008Q1

REPORT INFORMATION
  Report Type: 
  Country: None (occurrence: None)
  Receive Date: 20080318
  Receipt Date: 20080306
  Transmission Date: 20080703
  Serious: Yes (Other)
  Sender: FDA-Public Use
  Company Number: 2008RL000083

PATIENT
  Age: 66 Year
  Sex: Male

DRUGS (2)
  1. PROPAFENONE HCL [Suspect]
     Indication: ATRIAL FLUTTER
  2. PROPAFENONE HCL [Suspect]
     Indication: ATRIAL FLUTTER
     Dosage: PO
     Route: 048

REACTIONS (1)
  - BRUGADA SYNDROME [None]
